FAERS Safety Report 4768723-2 (Version None)
Quarter: 2005Q3

REPORT INFORMATION
  Report Type: 
  Country: None (occurrence: None)
  Receive Date: 20050914
  Receipt Date: 20050912
  Transmission Date: 20060218
  Serious: Yes (Other)
  Sender: FDA-Public Use
  Company Number: US-GLAXOSMITHKLINE-A0573851A

PATIENT
  Age: 9 Year
  Sex: Female

DRUGS (9)
  1. FLOVENT [Suspect]
     Indication: ASTHMA
     Dosage: 220MCG TWICE PER DAY
     Route: 055
     Dates: start: 20050907, end: 20050907
  2. UNSPECIFIED DRUG [Concomitant]
  3. PAXIL [Concomitant]
  4. ZANTAC [Concomitant]
  5. DUONEB [Concomitant]
  6. UNKNOWN MEDICATION [Concomitant]
  7. ALBUTEROL [Concomitant]
  8. ATROVENT [Concomitant]
  9. PULMICORT [Concomitant]

REACTIONS (2)
  - ASTHMA [None]
  - DYSGEUSIA [None]
